FAERS Safety Report 23691791 (Version 1)
Quarter: 2024Q2

REPORT INFORMATION
  Report Type: Spontaneous
  Country: US (occurrence: US)
  Receive Date: 20240401
  Receipt Date: 20240401
  Transmission Date: 20240716
  Serious: No
  Sender: FDA-Public Use
  Company Number: US-TEVA-VS-3167433

PATIENT
  Age: 65 Year
  Sex: Female

DRUGS (2)
  1. FLUTICASONE [Suspect]
     Active Substance: FLUTICASONE
     Indication: Product used for unknown indication
     Dosage: 250 MCG / 50 MCG
     Route: 055
  2. FLUTICASONE [Suspect]
     Active Substance: FLUTICASONE

REACTIONS (3)
  - Product label issue [Unknown]
  - Device issue [Unknown]
  - Device malfunction [Unknown]
